FAERS Safety Report 25157216 (Version 2)
Quarter: 2025Q2

REPORT INFORMATION
  Report Type: Spontaneous
  Country: TR (occurrence: TR)
  Receive Date: 20250403
  Receipt Date: 20250408
  Transmission Date: 20250717
  Serious: Yes (Life-Threatening, Hospitalization)
  Sender: PFIZER
  Company Number: TR-MLMSERVICE-20250325-PI451344-00047-1

PATIENT
  Age: 33 Day
  Sex: Male
  Weight: 1.045 kg

DRUGS (5)
  1. MEROPENEM [Suspect]
     Active Substance: MEROPENEM
     Indication: Acinetobacter infection
     Dosage: 20 MG/KG/DOSE, PER 12 H
     Route: 042
  2. MEROPENEM [Suspect]
     Active Substance: MEROPENEM
     Indication: Evidence based treatment
  3. AMIKACIN [Suspect]
     Active Substance: AMIKACIN
     Indication: Acinetobacter infection
     Route: 042
  4. AMIKACIN [Suspect]
     Active Substance: AMIKACIN
     Indication: Evidence based treatment
  5. FLUCONAZOLE [Concomitant]
     Active Substance: FLUCONAZOLE
     Indication: Prophylaxis
     Dosage: 3 MG/DOSE, TWICE WEEKLY
     Route: 042

REACTIONS (4)
  - Candida sepsis [Recovered/Resolved]
  - Infantile apnoea [Recovered/Resolved]
  - Leukopenia [Recovered/Resolved]
  - Thrombocytopenia [Recovered/Resolved]
